FAERS Safety Report 20700660 (Version 2)
Quarter: 2022Q2

REPORT INFORMATION
  Report Type: Spontaneous
  Country: FR (occurrence: FR)
  Receive Date: 20220412
  Receipt Date: 20220427
  Transmission Date: 20220721
  Serious: Yes (Hospitalization, Other)
  Sender: FDA-Public Use
  Company Number: None

PATIENT
  Age: 80 Year
  Sex: Male
  Weight: 77 kg

DRUGS (1)
  1. ATORVASTATIN CALCIUM [Suspect]
     Active Substance: ATORVASTATIN CALCIUM
     Indication: Myocardial ischaemia
     Dosage: 80 MG
     Route: 048
     Dates: start: 2016, end: 202112

REACTIONS (1)
  - Immune-mediated myositis [Recovering/Resolving]

NARRATIVE: CASE EVENT DATE: 20220201
